FAERS Safety Report 6178999-5 (Version None)
Quarter: 2009Q2

REPORT INFORMATION
  Report Type: 
  Country: None (occurrence: None)
  Receive Date: 20090505
  Receipt Date: 20090424
  Transmission Date: 20091009
  Serious: Yes (Hospitalization)
  Sender: FDA-Public Use
  Company Number: US-CELGENEUS-163-21880-09042186

PATIENT
  Sex: Female

DRUGS (5)
  1. REVLIMID [Suspect]
     Indication: MULTIPLE MYELOMA
     Route: 048
     Dates: start: 20090319, end: 20090416
  2. REVLIMID [Suspect]
     Route: 048
     Dates: start: 20090101, end: 20090101
  3. REVLIMID [Suspect]
     Route: 048
     Dates: start: 20080901, end: 20081101
  4. REVLIMID [Suspect]
     Route: 048
     Dates: start: 20060201, end: 20060201
  5. STEROID [Concomitant]
     Indication: DRUG USE FOR UNKNOWN INDICATION
     Route: 065

REACTIONS (2)
  - DIABETIC COMA [None]
  - PNEUMONIA [None]
